FAERS Safety Report 6437644-1 (Version None)
Quarter: 2009Q4

REPORT INFORMATION
  Report Type: 
  Country: None (occurrence: None)
  Receive Date: 20091112
  Receipt Date: 20091104
  Transmission Date: 20100525
  Serious: Yes (Hospitalization, Disabling)
  Sender: FDA-Public Use
  Company Number: A0815051A

PATIENT
  Age: 61 Year
  Sex: Male

DRUGS (7)
  1. ARIXTRA [Suspect]
     Indication: DEEP VEIN THROMBOSIS
     Dosage: 10MG PER DAY
     Route: 058
     Dates: start: 20091001, end: 20091101
  2. DIGOXIN [Concomitant]
  3. CARVEDILOL [Concomitant]
  4. ASPIRIN [Concomitant]
  5. ALLOPURINOL [Concomitant]
  6. INSULIN [Concomitant]
  7. SYNTHROID [Concomitant]

REACTIONS (3)
  - CARDIAC FAILURE [None]
  - DRUG ADMINISTRATION ERROR [None]
  - RENAL IMPAIRMENT [None]
